FAERS Safety Report 7291220-X (Version None)
Quarter: 2011Q1

REPORT INFORMATION
  Report Type: 
  Country: None (occurrence: None)
  Receive Date: 20110214
  Receipt Date: 20110203
  Transmission Date: 20110831
  Serious: Yes (Other)
  Sender: FDA-Public Use
  Company Number: GB-SANOFI-AVENTIS-2010SA069782

PATIENT
  Age: 61 Year
  Sex: Male
  Weight: 103.2 kg

DRUGS (14)
  1. OXALIPLATIN [Suspect]
     Route: 042
     Dates: start: 20090917, end: 20090917
  2. TACROLIMUS [Concomitant]
     Dates: start: 20090904
  3. OXALIPLATIN [Suspect]
     Route: 042
     Dates: start: 20090820, end: 20090820
  4. PARACETAMOL [Concomitant]
     Dates: start: 19890101
  5. AFLIBERCEPT [Suspect]
     Route: 042
     Dates: start: 20090820, end: 20090820
  6. AFLIBERCEPT [Suspect]
     Route: 042
     Dates: start: 20090917, end: 20090917
  7. TRAMADOL [Concomitant]
     Dates: start: 19890101
  8. ORABASE [Concomitant]
     Dates: start: 20090904
  9. 5-FU [Suspect]
     Route: 042
     Dates: start: 20090917, end: 20090917
  10. DERMOVATE [Concomitant]
     Dates: start: 20090930
  11. 5-FU [Suspect]
     Route: 042
     Dates: start: 20090820, end: 20090820
  12. LEUCOVORIN [Suspect]
     Route: 042
     Dates: start: 20090820, end: 20090820
  13. LEUCOVORIN [Suspect]
     Route: 042
     Dates: start: 20090917, end: 20090917
  14. ERYTHROMYCIN [Concomitant]
     Dates: start: 20090901, end: 20091006

REACTIONS (1)
  - IMPAIRED HEALING [None]
